FAERS Safety Report 23942161 (Version 2)
Quarter: 2025Q3

REPORT INFORMATION
  Report Type: Spontaneous
  Country: JP (occurrence: JP)
  Receive Date: 20240605
  Receipt Date: 20250716
  Transmission Date: 20251021
  Serious: Yes (Other)
  Sender: ALEXION PHARMACEUTICALS
  Company Number: 2024A121755

PATIENT
  Age: 74 Year
  Sex: Female

DRUGS (3)
  1. TAGRISSO [Suspect]
     Active Substance: OSIMERTINIB
     Indication: Non-small cell lung cancer
     Dosage: 80 MILLIGRAM, QD
  2. CISPLATIN [Concomitant]
     Active Substance: CISPLATIN
  3. VINORELBINE [Concomitant]
     Active Substance: VINORELBINE TARTRATE

REACTIONS (3)
  - Pulmonary embolism [Recovered/Resolved]
  - Interstitial lung disease [Recovering/Resolving]
  - Deep vein thrombosis [Unknown]
